FAERS Safety Report 4341405-7 (Version None)
Quarter: 2004Q2

REPORT INFORMATION
  Report Type: 
  Country: None (occurrence: None)
  Receive Date: 20040413
  Receipt Date: 20040401
  Transmission Date: 20050107
  Serious: Yes (Death, Hospitalization)
  Sender: FDA-Public Use
  Company Number: SEWYE681402APR04

PATIENT
  Age: 51 Year
  Sex: Male

DRUGS (3)
  1. RAPAMUNE [Suspect]
     Indication: ANGIOPATHY
     Dosage: 2 MG 1 X PER 1 DAY
     Route: 048
     Dates: start: 20020723, end: 20030822
  2. RAPAMUNE [Suspect]
     Indication: COMPLICATIONS OF TRANSPLANT SURGERY
     Dosage: 2 MG 1 X PER 1 DAY
     Route: 048
     Dates: start: 20020723, end: 20030822
  3. RAPAMUNE [Suspect]
     Indication: RENAL IMPAIRMENT
     Dosage: 2 MG 1 X PER 1 DAY
     Route: 048
     Dates: start: 20020723, end: 20030822

REACTIONS (19)
  - ANURIA [None]
  - ARTERIAL FIBROSIS [None]
  - ATELECTASIS [None]
  - BLOOD CREATININE INCREASED [None]
  - BRONCHOPNEUMONIA [None]
  - C-REACTIVE PROTEIN INCREASED [None]
  - CEREBROVASCULAR ACCIDENT [None]
  - CORONARY ARTERY ATHEROSCLEROSIS [None]
  - CORONARY ARTERY STENOSIS [None]
  - CREATININE RENAL CLEARANCE DECREASED [None]
  - DIALYSIS [None]
  - EJECTION FRACTION DECREASED [None]
  - FIBROSIS [None]
  - MULTI-ORGAN FAILURE [None]
  - PLEURAL EFFUSION [None]
  - PNEUMONITIS [None]
  - PULMONARY OEDEMA [None]
  - STAPHYLOCOCCAL INFECTION [None]
  - VENTRICULAR DYSFUNCTION [None]
